FAERS Safety Report 10078475 (Version 1)
Quarter: 2014Q2

REPORT INFORMATION
  Report Type: Spontaneous
  Country: US (occurrence: US)
  Receive Date: 20140415
  Receipt Date: 20140415
  Transmission Date: 20141212
  Serious: No
  Sender: FDA-Public Use
  Company Number: US-009507513-1404USA006005

PATIENT
  Sex: Female
  Weight: 57.6 kg

DRUGS (1)
  1. LOTRISONE [Suspect]
     Indication: BONE LESION
     Dosage: UNK
     Dates: start: 2013

REACTIONS (1)
  - Drug ineffective [Unknown]
